FAERS Safety Report 7655192-8 (Version None)
Quarter: 2011Q3

REPORT INFORMATION
  Report Type: 
  Country: None (occurrence: None)
  Receive Date: 20110801
  Receipt Date: 20110714
  Transmission Date: 20111222
  Serious: Yes (Hospitalization, Other)
  Sender: FDA-Public Use
  Company Number: 2011MA008850

PATIENT
  Age: 43 Year
  Sex: Female

DRUGS (1)
  1. ACYCLOVIR [Suspect]
     Indication: HERPES ZOSTER
     Dosage: 10 AMPOULE;X1;IV
     Route: 042
     Dates: start: 20100501, end: 20100501

REACTIONS (11)
  - TOXICITY TO VARIOUS AGENTS [None]
  - RENAL IMPAIRMENT [None]
  - VOMITING [None]
  - OLIGURIA [None]
  - BACK PAIN [None]
  - NAUSEA [None]
  - PALPITATIONS [None]
  - DECREASED APPETITE [None]
  - PYREXIA [None]
  - FLANK PAIN [None]
  - ASTHENIA [None]
